FAERS Safety Report 15385711 (Version 1)
Quarter: 2018Q3

REPORT INFORMATION
  Report Type: Spontaneous
  Country: US (occurrence: US)
  Receive Date: 20180914
  Receipt Date: 20180914
  Transmission Date: 20181010
  Serious: No
  Sender: FDA-Public Use
  Company Number: US-PERRIGO-17US027300

PATIENT
  Age: 46 Year
  Sex: Female
  Weight: 58.96 kg

DRUGS (2)
  1. CLOBETASOL PROPIONATE. [Suspect]
     Active Substance: CLOBETASOL PROPIONATE
     Dosage: 1 APPLICATION, QD
     Route: 061
     Dates: start: 20170830, end: 20170913
  2. CLOBETASOL PROPIONATE. [Suspect]
     Active Substance: CLOBETASOL PROPIONATE
     Indication: PSORIASIS
     Dosage: 1 APPLICATION, QD
     Route: 061
     Dates: start: 20170719, end: 20170816

REACTIONS (2)
  - Drug ineffective [Unknown]
  - Condition aggravated [Unknown]

NARRATIVE: CASE EVENT DATE: 20170719
